FAERS Safety Report 7271251-6 (Version None)
Quarter: 2011Q1

REPORT INFORMATION
  Report Type: 
  Country: None (occurrence: None)
  Receive Date: 20110203
  Receipt Date: 20110128
  Transmission Date: 20110831
  Serious: Yes (Hospitalization)
  Sender: FDA-Public Use
  Company Number: FR-SP-2009-01935

PATIENT
  Sex: Male

DRUGS (6)
  1. CORDARONE [Concomitant]
     Route: 048
  2. ZYLORIC [Concomitant]
     Route: 048
  3. ZOCOR [Concomitant]
     Route: 048
  4. AVODART [Concomitant]
     Route: 048
  5. CONTRAMAL [Concomitant]
     Route: 048
  6. IMMUCYST [Suspect]
     Indication: BLADDER CANCER
     Route: 043
     Dates: start: 20080801, end: 20081101

REACTIONS (3)
  - SYNOVITIS [None]
  - OEDEMA PERIPHERAL [None]
  - ARTHRALGIA [None]
